FAERS Safety Report 11643817 (Version 1)
Quarter: 2015Q4

REPORT INFORMATION
  Report Type: Spontaneous
  Country: AT (occurrence: AT)
  Receive Date: 20151020
  Receipt Date: 20151020
  Transmission Date: 20160304
  Serious: Yes (Other)
  Sender: FDA-Public Use
  Company Number: AT-JNJFOC-20151010271

PATIENT
  Sex: Male

DRUGS (11)
  1. AKINETON [Concomitant]
     Active Substance: BIPERIDEN HYDROCHLORIDE
     Route: 065
  2. TRITTICO [Concomitant]
     Active Substance: TRAZODONE HYDROCHLORIDE
     Route: 065
  3. CONCOR [Concomitant]
     Active Substance: BISOPROLOL FUMARATE
     Route: 065
  4. NOZINAN [Concomitant]
     Active Substance: LEVOMEPROMAZINE
     Route: 065
  5. SOVALDI [Suspect]
     Active Substance: SOFOSBUVIR
     Indication: HEPATITIS C
     Route: 065
     Dates: start: 20151002
  6. ZYPREXA [Concomitant]
     Active Substance: OLANZAPINE
     Route: 065
  7. OLYSIO [Suspect]
     Active Substance: SIMEPREVIR
     Indication: HEPATITIS C
     Route: 065
     Dates: start: 20151002
  8. ZYPREXA [Concomitant]
     Active Substance: OLANZAPINE
     Route: 065
  9. HALDOL [Concomitant]
     Active Substance: HALOPERIDOL
     Dosage: EVERY 14 DAYS
     Route: 030
  10. ZURCAL [Concomitant]
     Active Substance: PANTOPRAZOLE SODIUM
     Route: 065
  11. AMBROBENE [Concomitant]
     Active Substance: AMBROXOL HYDROCHLORIDE
     Dosage: 15 MG/5 ML
     Route: 065

REACTIONS (1)
  - Psychotic disorder [Unknown]
